FAERS Safety Report 25492117 (Version 1)
Quarter: 2025Q2

REPORT INFORMATION
  Report Type: Report from Study
  Country: JP (occurrence: JP)
  Receive Date: 20250630
  Receipt Date: 20250630
  Transmission Date: 20250717
  Serious: Yes (Death, Hospitalization, Other)
  Sender: AMGEN
  Company Number: JP-KISSEI-TV20240659_P_1

PATIENT
  Age: 80 Year
  Sex: Female
  Weight: 41.2 kg

DRUGS (121)
  1. AVACOPAN [Suspect]
     Active Substance: AVACOPAN
     Indication: Granulomatosis with polyangiitis
     Dosage: 30,MG,BID
     Route: 048
     Dates: start: 20230525, end: 20240207
  2. PREDNISOLONE [Suspect]
     Active Substance: PREDNISOLONE
     Indication: Granulomatosis with polyangiitis
     Dosage: 20,MG,QD
     Route: 048
     Dates: end: 2023
  3. PREDNISOLONE [Suspect]
     Active Substance: PREDNISOLONE
     Indication: Pneumonia
     Dosage: 17,MG,QD
     Route: 048
     Dates: start: 2023, end: 2023
  4. PREDNISOLONE [Suspect]
     Active Substance: PREDNISOLONE
     Dosage: 14,MG,QD
     Route: 048
     Dates: start: 2023, end: 2023
  5. PREDNISOLONE [Suspect]
     Active Substance: PREDNISOLONE
     Dosage: 20,MG,QD
     Route: 048
     Dates: start: 2023, end: 2023
  6. PREDNISOLONE [Suspect]
     Active Substance: PREDNISOLONE
     Dosage: 15,MG,QD
     Route: 048
     Dates: start: 2023, end: 2023
  7. PREDNISOLONE [Suspect]
     Active Substance: PREDNISOLONE
     Dosage: 14,MG,QD
     Route: 048
     Dates: start: 2023, end: 2023
  8. PREDNISOLONE [Suspect]
     Active Substance: PREDNISOLONE
     Dosage: 13,MG,QD
     Route: 048
     Dates: start: 2023, end: 2023
  9. PREDNISOLONE [Suspect]
     Active Substance: PREDNISOLONE
     Dosage: 15 UNK
     Route: 048
     Dates: start: 2023
  10. PREDNISOLONE [Suspect]
     Active Substance: PREDNISOLONE
     Dosage: 20 MG, QD
     Route: 048
  11. PREDNISOLONE [Suspect]
     Active Substance: PREDNISOLONE
     Dosage: 25 UNK
     Route: 048
  12. RITUXIMAB [Suspect]
     Active Substance: RITUXIMAB
     Indication: Granulomatosis with polyangiitis
     Route: 040
  13. RITUXIMAB [Suspect]
     Active Substance: RITUXIMAB
     Route: 040
     Dates: start: 2023, end: 2023
  14. RITUXIMAB [Suspect]
     Active Substance: RITUXIMAB
     Route: 040
     Dates: start: 2023, end: 2023
  15. RITUXIMAB [Suspect]
     Active Substance: RITUXIMAB
     Route: 040
     Dates: start: 2023, end: 2023
  16. RITUXIMAB [Suspect]
     Active Substance: RITUXIMAB
     Route: 040
     Dates: start: 2023, end: 2023
  17. RITUXIMAB [Suspect]
     Active Substance: RITUXIMAB
     Route: 040
     Dates: start: 2023, end: 2023
  18. NOREPINEPHRINE BITARTRATE [Suspect]
     Active Substance: NOREPINEPHRINE BITARTRATE
     Indication: Product used for unknown indication
     Route: 040
  19. NOREPINEPHRINE BITARTRATE [Suspect]
     Active Substance: NOREPINEPHRINE BITARTRATE
     Route: 040
  20. SOLU-CORTEF [Concomitant]
     Active Substance: HYDROCORTISONE SODIUM SUCCINATE
     Indication: Prophylaxis
     Dosage: 200,MG,QD
     Route: 040
     Dates: start: 20230526, end: 20230526
  21. SOLU-CORTEF [Concomitant]
     Active Substance: HYDROCORTISONE SODIUM SUCCINATE
     Dosage: 200,MG,QD
     Route: 040
     Dates: start: 20230602, end: 20230602
  22. SOLU-CORTEF [Concomitant]
     Active Substance: HYDROCORTISONE SODIUM SUCCINATE
     Dosage: 200,MG,QD
     Route: 040
     Dates: start: 20230609, end: 20230609
  23. SOLU-CORTEF [Concomitant]
     Active Substance: HYDROCORTISONE SODIUM SUCCINATE
     Dosage: 200 UNK
     Route: 040
     Dates: start: 20231208, end: 20231208
  24. SOLU-CORTEF [Concomitant]
     Active Substance: HYDROCORTISONE SODIUM SUCCINATE
     Dosage: 200 UNK
     Route: 040
     Dates: start: 20231221, end: 20231221
  25. Denosine [Concomitant]
     Indication: Antifungal prophylaxis
     Dosage: 90,MG,QD
     Route: 040
     Dates: end: 20230530
  26. SULFAMETHOXAZOLE\TRIMETHOPRIM [Concomitant]
     Active Substance: SULFAMETHOXAZOLE\TRIMETHOPRIM
     Indication: Antifungal prophylaxis
     Dosage: 480,MG,QD
     Route: 048
  27. SULFAMETHOXAZOLE\TRIMETHOPRIM [Concomitant]
     Active Substance: SULFAMETHOXAZOLE\TRIMETHOPRIM
     Indication: Antifungal prophylaxis
  28. FUNGIZONE [Concomitant]
     Active Substance: AMPHOTERICIN B
     Indication: Antifungal prophylaxis
     Dosage: 300,MG,QD
     Route: 048
     Dates: start: 20230528
  29. AMOXICILLIN [Concomitant]
     Active Substance: AMOXICILLIN
     Indication: Antifungal prophylaxis
     Dosage: 750,MG,QD
     Route: 048
     Dates: start: 20230829, end: 20230901
  30. WATER FOR INJECTION [Concomitant]
     Active Substance: WATER
     Route: 040
     Dates: end: 20230530
  31. WATER FOR INJECTION [Concomitant]
     Active Substance: WATER
     Route: 040
     Dates: start: 20230819, end: 20230821
  32. ISOTONIC SODIUM CHLORIDE SOLUTION [Concomitant]
     Active Substance: SODIUM CHLORIDE
     Route: 040
     Dates: end: 20230530
  33. HEPARIN SODIUM [Concomitant]
     Active Substance: HEPARIN SODIUM
     Route: 040
     Dates: end: 20230601
  34. HEPARIN SODIUM [Concomitant]
     Active Substance: HEPARIN SODIUM
     Route: 040
     Dates: start: 20231207, end: 20231208
  35. HEPARIN SODIUM [Concomitant]
     Active Substance: HEPARIN SODIUM
     Route: 040
     Dates: start: 20240117, end: 20240130
  36. CODEINE PHOSPHATE [Concomitant]
     Active Substance: CODEINE PHOSPHATE
     Indication: Cough
     Route: 048
     Dates: end: 20230526
  37. CODEINE PHOSPHATE [Concomitant]
     Active Substance: CODEINE PHOSPHATE
     Route: 048
     Dates: start: 20231109
  38. CARBOCYSTEINE [Concomitant]
     Active Substance: CARBOCYSTEINE
     Route: 048
     Dates: end: 20231012
  39. CARBOCYSTEINE [Concomitant]
     Active Substance: CARBOCYSTEINE
     Route: 048
     Dates: start: 20231109, end: 20240115
  40. CARBOCYSTEINE [Concomitant]
     Active Substance: CARBOCYSTEINE
     Route: 048
     Dates: start: 20240116, end: 20240207
  41. MIYA-BM [Concomitant]
     Active Substance: CLOSTRIDIUM BUTYRICUM SPORES STRAIN M-55
     Route: 048
     Dates: end: 20230921
  42. CARBOHYDRATES\FATTY ACIDS\MINERALS\PROTEIN\VITAMINS [Concomitant]
     Active Substance: CARBOHYDRATES\FATTY ACIDS\MINERALS\PROTEIN\VITAMINS
     Dates: end: 20230526
  43. VONOPRAZAN FUMARATE [Concomitant]
     Active Substance: VONOPRAZAN FUMARATE
     Route: 048
     Dates: end: 20230526
  44. CALONAL [Concomitant]
     Active Substance: ACETAMINOPHEN
     Indication: Premedication
     Route: 048
     Dates: end: 20230609
  45. CALONAL [Concomitant]
     Active Substance: ACETAMINOPHEN
     Route: 048
     Dates: start: 20230612, end: 20230612
  46. CALONAL [Concomitant]
     Active Substance: ACETAMINOPHEN
     Route: 048
     Dates: start: 20231208, end: 20231208
  47. CALONAL [Concomitant]
     Active Substance: ACETAMINOPHEN
     Route: 048
     Dates: start: 20231221, end: 20231221
  48. CHLORPHENIRAMINE MALEATE [Concomitant]
     Active Substance: CHLORPHENIRAMINE MALEATE
     Route: 040
     Dates: end: 20230609
  49. CHLORPHENIRAMINE MALEATE [Concomitant]
     Active Substance: CHLORPHENIRAMINE MALEATE
     Route: 040
     Dates: start: 20231208, end: 20231208
  50. CHLORPHENIRAMINE MALEATE [Concomitant]
     Active Substance: CHLORPHENIRAMINE MALEATE
     Route: 040
     Dates: start: 20231221, end: 20231221
  51. SODIUM CHLORIDE [Concomitant]
     Active Substance: SODIUM CHLORIDE
     Route: 040
     Dates: end: 20230609
  52. SODIUM CHLORIDE [Concomitant]
     Active Substance: SODIUM CHLORIDE
     Route: 040
     Dates: start: 20230818, end: 20230818
  53. SODIUM CHLORIDE [Concomitant]
     Active Substance: SODIUM CHLORIDE
     Route: 040
     Dates: start: 20230819, end: 20230819
  54. SODIUM CHLORIDE [Concomitant]
     Active Substance: SODIUM CHLORIDE
     Route: 040
     Dates: start: 20230819, end: 20230819
  55. SODIUM CHLORIDE [Concomitant]
     Active Substance: SODIUM CHLORIDE
     Route: 040
     Dates: start: 20230820, end: 20230826
  56. SODIUM CHLORIDE [Concomitant]
     Active Substance: SODIUM CHLORIDE
     Route: 040
     Dates: start: 20230822, end: 20230822
  57. SODIUM CHLORIDE [Concomitant]
     Active Substance: SODIUM CHLORIDE
     Route: 040
     Dates: start: 20230823, end: 20230825
  58. SODIUM CHLORIDE [Concomitant]
     Active Substance: SODIUM CHLORIDE
     Route: 040
     Dates: start: 20230826, end: 20230828
  59. SODIUM CHLORIDE [Concomitant]
     Active Substance: SODIUM CHLORIDE
     Route: 040
     Dates: start: 20230826, end: 20230827
  60. SODIUM CHLORIDE [Concomitant]
     Active Substance: SODIUM CHLORIDE
     Route: 040
     Dates: start: 20230828, end: 20230828
  61. TENELIGLIPTIN HYDROBROMIDE HYDRATE [Concomitant]
     Active Substance: TENELIGLIPTIN HYDROBROMIDE HYDRATE
     Indication: Diabetes mellitus
     Route: 048
     Dates: end: 20231012
  62. TENELIGLIPTIN HYDROBROMIDE HYDRATE [Concomitant]
     Active Substance: TENELIGLIPTIN HYDROBROMIDE HYDRATE
     Route: 048
     Dates: start: 20231013
  63. ESOMEPRAZOLE [Concomitant]
     Active Substance: ESOMEPRAZOLE
     Indication: Prophylaxis
     Route: 048
     Dates: start: 20230527, end: 20240115
  64. ELDECALCITOL [Concomitant]
     Active Substance: ELDECALCITOL
     Route: 048
  65. STERILE PURIFIED WATER [Concomitant]
     Active Substance: WATER
     Route: 048
     Dates: start: 20230528
  66. LOXOPROFEN SODIUM [Concomitant]
     Active Substance: LOXOPROFEN SODIUM
     Indication: Arthralgia
     Route: 062
     Dates: start: 20230531, end: 20230612
  67. LOXOPROFEN SODIUM [Concomitant]
     Active Substance: LOXOPROFEN SODIUM
     Route: 062
     Dates: start: 20230612, end: 20231213
  68. LOXOPROFEN SODIUM [Concomitant]
     Active Substance: LOXOPROFEN SODIUM
     Route: 062
     Dates: start: 20240101, end: 20240114
  69. LOXOPROFEN SODIUM [Concomitant]
     Active Substance: LOXOPROFEN SODIUM
     Route: 062
     Dates: start: 20240110, end: 20240123
  70. Lochol [Concomitant]
     Indication: Hyperlipidaemia
     Route: 048
     Dates: start: 20230605
  71. OFLOXACIN [Concomitant]
     Active Substance: OFLOXACIN
     Indication: Granulomatosis with polyangiitis
     Route: 001
     Dates: start: 20230612
  72. CALCIUM CHLORIDE ANHYDROUS\POTASSIUM CHLORIDE\SODIUM CHLORIDE\SODIUM L [Concomitant]
     Active Substance: CALCIUM CHLORIDE ANHYDROUS\POTASSIUM CHLORIDE\SODIUM CHLORIDE\SODIUM LACTATE
     Route: 040
     Dates: start: 20230819, end: 20230819
  73. CALCIUM CHLORIDE ANHYDROUS\POTASSIUM CHLORIDE\SODIUM CHLORIDE\SODIUM L [Concomitant]
     Active Substance: CALCIUM CHLORIDE ANHYDROUS\POTASSIUM CHLORIDE\SODIUM CHLORIDE\SODIUM LACTATE
     Route: 040
     Dates: start: 20230820, end: 20230821
  74. DEXTROSE [Concomitant]
     Active Substance: DEXTROSE MONOHYDRATE
     Route: 040
     Dates: start: 20230819, end: 20230821
  75. DEXTROSE [Concomitant]
     Active Substance: DEXTROSE MONOHYDRATE
     Dates: start: 20240128, end: 20240128
  76. DIETARY SUPPLEMENT\PROBIOTICS [Concomitant]
     Active Substance: DIETARY SUPPLEMENT\PROBIOTICS NOS
     Indication: Diarrhoea
     Route: 048
     Dates: start: 20230821, end: 20230914
  77. DIETARY SUPPLEMENT\PROBIOTICS [Concomitant]
     Active Substance: DIETARY SUPPLEMENT\PROBIOTICS NOS
     Indication: Gastroenteritis
  78. LOXOPROFEN SODIUM [Concomitant]
     Active Substance: LOXOPROFEN SODIUM
     Indication: Parotitis
     Route: 048
     Dates: start: 20230912, end: 20230918
  79. LOXOPROFEN SODIUM [Concomitant]
     Active Substance: LOXOPROFEN SODIUM
     Route: 048
     Dates: start: 20231205, end: 20231218
  80. DIETARY SUPPLEMENT\PROBIOTICS [Concomitant]
     Active Substance: DIETARY SUPPLEMENT\PROBIOTICS NOS
     Route: 048
     Dates: start: 20230915
  81. TRANSAMIN [Concomitant]
     Active Substance: TRANEXAMIC ACID
     Indication: Oropharyngeal discomfort
     Route: 048
     Dates: start: 20230915, end: 20230921
  82. TRANSAMIN [Concomitant]
     Active Substance: TRANEXAMIC ACID
     Route: 048
     Dates: start: 20231130, end: 20231222
  83. AMBROXOL HYDROCHLORIDE [Concomitant]
     Active Substance: AMBROXOL HYDROCHLORIDE
     Indication: Product availability issue
     Route: 048
     Dates: start: 20231013, end: 20231101
  84. SODIUM CHLORIDE [Concomitant]
     Active Substance: SODIUM CHLORIDE
     Indication: Hyponatraemia
     Route: 048
     Dates: start: 20231109, end: 20231204
  85. SODIUM CHLORIDE [Concomitant]
     Active Substance: SODIUM CHLORIDE
     Route: 048
     Dates: start: 20240111, end: 20240119
  86. KETOPROFEN [Concomitant]
     Active Substance: KETOPROFEN
     Indication: Arthralgia
     Route: 062
     Dates: end: 20230530
  87. SOLU-MEDROL [Concomitant]
     Active Substance: METHYLPREDNISOLONE SODIUM SUCCINATE
     Indication: Granulomatosis with polyangiitis
     Dosage: 500 MG, QD
     Route: 040
     Dates: start: 20231207, end: 20231209
  88. SOLU-MEDROL [Concomitant]
     Active Substance: METHYLPREDNISOLONE SODIUM SUCCINATE
     Dosage: 500 UNK
     Route: 040
     Dates: start: 20240116, end: 20240118
  89. VFEND [Concomitant]
     Active Substance: VORICONAZOLE
     Indication: Antifungal prophylaxis
     Dosage: 300 MG, QD
     Route: 048
     Dates: start: 20231220, end: 20231220
  90. VFEND [Concomitant]
     Active Substance: VORICONAZOLE
     Dosage: 200 UNK
     Route: 048
     Dates: start: 20231221, end: 20231225
  91. VFEND [Concomitant]
     Active Substance: VORICONAZOLE
     Dosage: 200 UNK
     Route: 048
     Dates: start: 20240106, end: 20240109
  92. AMBISOME [Concomitant]
     Active Substance: AMPHOTERICIN B
     Indication: Antifungal prophylaxis
     Dosage: 75 MG, QD
     Route: 040
     Dates: start: 20240122, end: 20240206
  93. Fradiomycin-gramicidin s [Concomitant]
     Route: 048
     Dates: start: 20231207, end: 20231220
  94. HUMULIN R [Concomitant]
     Active Substance: INSULIN HUMAN
     Route: 058
     Dates: start: 20231208, end: 20231208
  95. HUMULIN R [Concomitant]
     Active Substance: INSULIN HUMAN
     Route: 058
     Dates: start: 20240126, end: 20240126
  96. HUMULIN R [Concomitant]
     Active Substance: INSULIN HUMAN
     Route: 058
     Dates: start: 20240109, end: 20240125
  97. HUMULIN R [Concomitant]
     Active Substance: INSULIN HUMAN
     Route: 058
     Dates: start: 20240130, end: 20240207
  98. IPRAGLIFLOZIN L-PROLINE [Concomitant]
     Active Substance: IPRAGLIFLOZIN L-PROLINE
     Route: 048
     Dates: start: 20231209, end: 20240124
  99. VALGANCICLOVIR HYDROCHLORIDE [Concomitant]
     Active Substance: VALGANCICLOVIR HYDROCHLORIDE
     Route: 048
     Dates: start: 20231213, end: 20240115
  100. RISPERIDONE [Concomitant]
     Active Substance: RISPERIDONE
     Route: 048
     Dates: start: 20231225, end: 20231227
  101. FILGRASTIM [Concomitant]
     Active Substance: FILGRASTIM
     Route: 058
     Dates: start: 20231228, end: 20240103
  102. FILGRASTIM [Concomitant]
     Active Substance: FILGRASTIM
     Route: 058
     Dates: start: 20240115, end: 20240122
  103. VANCOMYCIN HYDROCHLORIDE [Concomitant]
     Active Substance: VANCOMYCIN HYDROCHLORIDE
     Route: 048
     Dates: start: 20240112, end: 20240125
  104. VANCOMYCIN HYDROCHLORIDE [Concomitant]
     Active Substance: VANCOMYCIN HYDROCHLORIDE
     Route: 040
     Dates: start: 20240130, end: 20240204
  105. METOCLOPRAMIDE [Concomitant]
     Active Substance: METOCLOPRAMIDE
     Route: 048
     Dates: start: 20240113, end: 20240113
  106. NEXIUM [Concomitant]
     Active Substance: ESOMEPRAZOLE MAGNESIUM
     Route: 048
     Dates: start: 20240116, end: 20240207
  107. CEFEPIME HYDROCHLORIDE [Concomitant]
     Active Substance: CEFEPIME HYDROCHLORIDE
     Route: 040
     Dates: start: 20240115, end: 20240129
  108. FUROSEMIDE [Concomitant]
     Active Substance: FUROSEMIDE
     Route: 040
     Dates: start: 20240116, end: 20240118
  109. FUROSEMIDE [Concomitant]
     Active Substance: FUROSEMIDE
     Dates: start: 20240201, end: 20240205
  110. Insulin glargine biosimilar 1 [Concomitant]
     Route: 058
     Dates: start: 20240116, end: 20240116
  111. KENKETU GLOVENIN-I [Concomitant]
     Active Substance: HUMAN IMMUNOGLOBULIN G
     Route: 040
     Dates: start: 20240116, end: 20240116
  112. KENKETU GLOVENIN-I [Concomitant]
     Active Substance: HUMAN IMMUNOGLOBULIN G
     Route: 040
     Dates: start: 20240130, end: 20240130
  113. Irradiated platelet concentrate-leukocytes reduced [Concomitant]
     Route: 040
     Dates: start: 20240116, end: 20240120
  114. Irradiated platelet concentrate-leukocytes reduced [Concomitant]
     Route: 040
     Dates: start: 20240122, end: 20240122
  115. POTASSIUM CHLORIDE [Concomitant]
     Active Substance: POTASSIUM CHLORIDE
     Dates: start: 20240118, end: 20240118
  116. PETROLATUM [Concomitant]
     Active Substance: PETROLATUM
     Dates: start: 20240119, end: 20240203
  117. Azunol [Concomitant]
     Dates: start: 20240119, end: 20240207
  118. HUMAN RED BLOOD CELL [Concomitant]
     Active Substance: HUMAN RED BLOOD CELL
     Route: 040
     Dates: start: 20240120, end: 20240120
  119. HUMAN RED BLOOD CELL [Concomitant]
     Active Substance: HUMAN RED BLOOD CELL
     Route: 040
     Dates: start: 20240201, end: 20240201
  120. DOPAMINE HYDROCHLORIDE [Concomitant]
     Active Substance: DOPAMINE HYDROCHLORIDE
     Route: 040
     Dates: start: 20240131, end: 20240207
  121. CYCLOPHOSPHAMIDE [Concomitant]
     Active Substance: CYCLOPHOSPHAMIDE
     Indication: Granulomatosis with polyangiitis
     Dates: start: 20240112, end: 20240112

REACTIONS (9)
  - General physical health deterioration [Fatal]
  - Hepatic function abnormal [Fatal]
  - Bronchopulmonary aspergillosis [Fatal]
  - Renal failure [Fatal]
  - Cytomegalovirus infection reactivation [Fatal]
  - Granulomatosis with polyangiitis [Fatal]
  - Pneumonia [Recovering/Resolving]
  - Gastroenteritis [Recovering/Resolving]
  - Hyperlipidaemia [Recovering/Resolving]

NARRATIVE: CASE EVENT DATE: 20230529
